FAERS Safety Report 21573842 (Version 1)
Quarter: 2022Q4

REPORT INFORMATION
  Report Type: Spontaneous
  Country: US (occurrence: None)
  Receive Date: 20221108
  Receipt Date: 20221108
  Transmission Date: 20230112
  Serious: Yes (Hospitalization)
  Sender: FDA-Public Use
  Company Number: None

PATIENT
  Sex: Male

DRUGS (2)
  1. CAPECITABINE [Suspect]
     Active Substance: CAPECITABINE
     Dosage: FRE1500MG BID ORAL
     Route: 048
  2. AVASTIN [Suspect]
     Active Substance: BEVACIZUMAB

REACTIONS (7)
  - Neuropathy peripheral [None]
  - Oral hyperaesthesia [None]
  - Diarrhoea [None]
  - Hypertension [None]
  - Deep vein thrombosis [None]
  - Ventricular tachycardia [None]
  - Urosepsis [None]
